FAERS Safety Report 13438861 (Version 1)
Quarter: 2017Q2

REPORT INFORMATION
  Report Type: Spontaneous
  Country: BR (occurrence: BR)
  Receive Date: 20170413
  Receipt Date: 20170413
  Transmission Date: 20170830
  Serious: Yes (Other)
  Sender: FDA-Public Use
  Company Number: BR-SHIRE-BR201706420

PATIENT
  Age: 10 Year
  Sex: Male

DRUGS (1)
  1. ELAPRASE [Suspect]
     Active Substance: IDURSULFASE
     Indication: PRODUCT USED FOR UNKNOWN INDICATION
     Dosage: UNK UNK, UNKNOWN
     Route: 041
     Dates: start: 20110720

REACTIONS (3)
  - Chills [Unknown]
  - Device related infection [Unknown]
  - Tremor [Unknown]

NARRATIVE: CASE EVENT DATE: 20170302
